FAERS Safety Report 7460649-9 (Version None)
Quarter: 2011Q2

REPORT INFORMATION
  Report Type: 
  Country: None (occurrence: None)
  Receive Date: 20110505
  Receipt Date: 20110421
  Transmission Date: 20111010
  Serious: Yes (Death)
  Sender: FDA-Public Use
  Company Number: GB-AMGEN-GBRCT2010000068

PATIENT
  Sex: Female
  Weight: 80 kg

DRUGS (3)
  1. HYDROXYCHLOROQUINE [Concomitant]
     Dosage: UNKNOWN
  2. METHOTREXATE [Concomitant]
     Dosage: UNKNOWN
  3. ETANERCEPT [Suspect]
     Indication: RHEUMATOID ARTHRITIS
     Dosage: 25 MG, 2 TIMES/WK
     Route: 058
     Dates: start: 20080911

REACTIONS (4)
  - PULMONARY EMBOLISM [None]
  - FUNGAL INFECTION [None]
  - SEPSIS [None]
  - GASTROINTESTINAL HAEMORRHAGE [None]
